FAERS Safety Report 7124423-5 (Version None)
Quarter: 2010Q4

REPORT INFORMATION
  Report Type: 
  Country: None (occurrence: None)
  Receive Date: 20101126
  Receipt Date: 20101115
  Transmission Date: 20110411
  Serious: Yes (Other)
  Sender: FDA-Public Use
  Company Number: GXBR2010US01950

PATIENT
  Sex: Male
  Weight: 74.8 kg

DRUGS (13)
  1. METOPROLOL SUCCINATE [Suspect]
     Indication: BLOOD PRESSURE ABNORMAL
     Dosage: 100 MG, QD
     Route: 048
     Dates: start: 20050101
  2. QUINAPRIL HCL [Suspect]
     Indication: BLOOD PRESSURE ABNORMAL
     Dosage: 40 MG, QD
     Route: 048
     Dates: start: 20030101
  3. FUROSEMIDE TABLETS USP (NGX) [Suspect]
  4. ALPRAZOLAM [Suspect]
     Indication: ANXIETY
     Dosage: 0.5 MG, QD
     Route: 048
     Dates: start: 19880101
  5. ZETIA [Suspect]
     Indication: CARDIAC DISORDER
     Dosage: 10 MG, QD
     Route: 048
     Dates: start: 20060101
  6. ARICEPT [Suspect]
     Indication: AMNESIA
     Dosage: 5 MG, QD
     Route: 048
     Dates: start: 20100101, end: 20100901
  7. ARICEPT [Suspect]
     Dosage: 10 MG, QD
     Route: 048
     Dates: start: 20100101, end: 20100101
  8. POTASSIUM CHLORIDE [Suspect]
     Indication: MINERAL SUPPLEMENTATION
     Dosage: 10 MEQ, BID
     Route: 048
     Dates: start: 20050101
  9. AVODART [Suspect]
     Indication: PROSTATIC DISORDER
     Dosage: 0.5 MG, QD
     Route: 048
     Dates: start: 20070101
  10. UROXATRAL [Suspect]
     Indication: PROSTATIC DISORDER
     Dosage: 10 MG, QHS
     Route: 048
     Dates: start: 20091101
  11. AMBIEN [Suspect]
     Dosage: UNK
  12. DILTIAZEM [Suspect]
     Indication: BLOOD PRESSURE ABNORMAL
     Dosage: 360 MG, QD
     Route: 048
     Dates: start: 20050101
  13. NAMENDA [Suspect]
     Indication: DEMENTIA
     Dosage: 5 MG, QD
     Route: 048
     Dates: start: 20100921

REACTIONS (18)
  - ABDOMINAL DISCOMFORT [None]
  - BLADDER DISCOMFORT [None]
  - DEMENTIA [None]
  - DIARRHOEA [None]
  - DIZZINESS [None]
  - DYSURIA [None]
  - ERYTHEMA [None]
  - EYE IRRITATION [None]
  - GAIT DISTURBANCE [None]
  - HEADACHE [None]
  - INSOMNIA [None]
  - MALAISE [None]
  - NAUSEA [None]
  - OEDEMA PERIPHERAL [None]
  - SOMNOLENCE [None]
  - STRESS [None]
  - URINE FLOW DECREASED [None]
  - VITAMIN D DECREASED [None]
